FAERS Safety Report 23574790 (Version 1)
Quarter: 2024Q1

REPORT INFORMATION
  Report Type: Spontaneous
  Country: CN (occurrence: CN)
  Receive Date: 20240228
  Receipt Date: 20240228
  Transmission Date: 20240410
  Serious: Yes (Hospitalization, Other)
  Sender: FDA-Public Use
  Company Number: CN-SA-SAC20240227000466

PATIENT
  Age: 69 Year
  Sex: Male
  Weight: 66 kg

DRUGS (3)
  1. CLOPIDOGREL BISULFATE [Suspect]
     Active Substance: CLOPIDOGREL BISULFATE
     Indication: Coronary artery disease
     Dosage: 75 MG, QD
     Route: 048
     Dates: start: 20240128, end: 20240213
  2. INDOBUFEN [Suspect]
     Active Substance: INDOBUFEN
     Indication: Coronary artery disease
     Dosage: 100 MG, BID
     Route: 048
     Dates: start: 20240128, end: 20240213
  3. ROSUVASTATIN CALCIUM [Concomitant]
     Active Substance: ROSUVASTATIN CALCIUM
     Indication: Blood cholesterol
     Dosage: 10 MG, QD

REACTIONS (6)
  - Gastrointestinal haemorrhage [Unknown]
  - Melaena [Unknown]
  - Fatigue [Unknown]
  - Tachypnoea [Unknown]
  - Dry mouth [Unknown]
  - Asthenia [Unknown]

NARRATIVE: CASE EVENT DATE: 20240211
